FAERS Safety Report 13108670 (Version 1)
Quarter: 2017Q1

REPORT INFORMATION
  Report Type: Spontaneous
  Country: US (occurrence: US)
  Receive Date: 20170111
  Receipt Date: 20170111
  Transmission Date: 20170428
  Serious: No
  Sender: FDA-Public Use
  Company Number: None

PATIENT
  Age: 50 Year
  Sex: Female
  Weight: 53.57 kg

DRUGS (1)
  1. TOPRIMATE, 50 MG [Suspect]
     Active Substance: TOPIRAMATE

REACTIONS (3)
  - Nausea [None]
  - Tinnitus [None]
  - Dizziness [None]

NARRATIVE: CASE EVENT DATE: 20161221
